FAERS Safety Report 5091753-0 (Version None)
Quarter: 2006Q3

REPORT INFORMATION
  Report Type: 
  Country: None (occurrence: None)
  Receive Date: 20060829
  Receipt Date: 20060504
  Transmission Date: 20061208
  Serious: No
  Sender: FDA-Public Use
  Company Number: US-BRISTOL-MYERS SQUIBB COMPANY-13367883

PATIENT
  Age: 73 Year
  Sex: Male
  Weight: 77 kg

DRUGS (2)
  1. ERBITUX [Suspect]
     Indication: RECTAL CANCER METASTATIC
     Route: 042
     Dates: start: 20060405, end: 20060405
  2. IRINOTECAN HCL [Concomitant]
     Indication: RECTAL CANCER METASTATIC

REACTIONS (3)
  - DIARRHOEA [None]
  - DYSPHAGIA [None]
  - RASH [None]
